FAERS Safety Report 8179838-3 (Version None)
Quarter: 2012Q1

REPORT INFORMATION
  Report Type: 
  Country: None (occurrence: None)
  Receive Date: 20120229
  Receipt Date: 20120217
  Transmission Date: 20120608
  Serious: Yes (Hospitalization)
  Sender: FDA-Public Use
  Company Number: UTC-015247

PATIENT
  Age: 69 Year
  Sex: Female
  Weight: 88.6 kg

DRUGS (5)
  1. TYVASO [Suspect]
     Indication: PULMONARY HYPERTENSION
     Dosage: 18-54 MICROGRAMS (4 IN 1 D), INHALATION
     Route: 055
     Dates: start: 20111212
  2. TYVASO [Suspect]
     Indication: COR PULMONALE CHRONIC
     Dosage: 18-54 MICROGRAMS (4 IN 1 D), INHALATION
     Route: 055
     Dates: start: 20111212
  3. REVATIO [Concomitant]
  4. TRACLEER [Concomitant]
  5. DIURETICS (DIURETICS) [Concomitant]

REACTIONS (4)
  - LOCALISED OEDEMA [None]
  - HEADACHE [None]
  - OEDEMA PERIPHERAL [None]
  - FLUID RETENTION [None]
